FAERS Safety Report 8463057-7 (Version None)
Quarter: 2012Q2

REPORT INFORMATION
  Report Type: 
  Country: None (occurrence: None)
  Receive Date: 20120323
  Receipt Date: 20110613
  Transmission Date: 20120825
  Serious: Yes (Other)
  Sender: FDA-Public Use
  Company Number: 163-21880-11061849

PATIENT
  Age: 71 Year
  Sex: Male

DRUGS (9)
  1. AMLODIPINE BESY-BENAZEPRIL HCL (AMLODIPINE BESYLATE W/BENAZEPRIL) [Concomitant]
  2. NEXIUM [Concomitant]
  3. LENALIDOMIDE [Suspect]
     Indication: MULTIPLE MYELOMA
     Dosage: 25 MG, X14 DAYS, PO
     Route: 048
     Dates: start: 20110525
  4. ASPIRIN [Concomitant]
  5. VITAMIN D [Concomitant]
  6. GABAPENTIN [Concomitant]
  7. DEXAMETHASONE [Concomitant]
  8. LISINOPRIL [Concomitant]
  9. ACYCLOVIR [Concomitant]

REACTIONS (1)
  - PULMONARY EMBOLISM [None]
